FAERS Safety Report 8446990-1 (Version None)
Quarter: 2012Q2

REPORT INFORMATION
  Report Type: 
  Country: None (occurrence: None)
  Receive Date: 20120619
  Receipt Date: 20120611
  Transmission Date: 20120825
  Serious: Yes (Life-Threatening, Hospitalization)
  Sender: FDA-Public Use
  Company Number: SG-SANOFI-AVENTIS-2012SA041542

PATIENT
  Age: 47 Year
  Sex: Female

DRUGS (2)
  1. PACLITAXEL [Concomitant]
     Route: 065
  2. ENOXAPARIN SODIUM [Suspect]
     Indication: PERCUTANEOUS CORONARY INTERVENTION
     Route: 022

REACTIONS (1)
  - CORONARY ARTERY THROMBOSIS [None]
